FAERS Safety Report 8506488-9 (Version None)
Quarter: 2012Q3

REPORT INFORMATION
  Report Type: 
  Country: None (occurrence: None)
  Receive Date: 20120712
  Receipt Date: 20120705
  Transmission Date: 20120928
  Serious: Yes (Other)
  Sender: FDA-Public Use
  Company Number: US-US-EMD SERONO, INC.-7038054

PATIENT
  Sex: Female

DRUGS (8)
  1. REBIF [Suspect]
     Indication: RELAPSING-REMITTING MULTIPLE SCLEROSIS
     Route: 058
     Dates: start: 20101102, end: 20110223
  2. NORTRIPTYLINE HCL [Concomitant]
     Indication: MIGRAINE
  3. STOOL SOFTENER [Concomitant]
     Indication: PRODUCT USED FOR UNKNOWN INDICATION
  4. MIRAPEX [Concomitant]
     Indication: RESTLESS LEGS SYNDROME
  5. ASPIRIN [Concomitant]
     Indication: CORONARY ARTERY DISEASE
  6. DARVOCET [Suspect]
     Indication: MIGRAINE
  7. ENABLEX [Concomitant]
     Indication: URINARY INCONTINENCE
  8. DARVOCET [Suspect]
     Indication: BACK PAIN

REACTIONS (2)
  - BLOOD PRESSURE ABNORMAL [None]
  - SICK SINUS SYNDROME [None]
